FAERS Safety Report 5085519-5 (Version None)
Quarter: 2006Q3

REPORT INFORMATION
  Report Type: 
  Country: None (occurrence: None)
  Receive Date: 20060822
  Receipt Date: 20060731
  Transmission Date: 20061208
  Serious: Yes (Other)
  Sender: FDA-Public Use
  Company Number: US-AVENTIS-200616701US

PATIENT
  Sex: Female

DRUGS (5)
  1. LANTUS [Suspect]
     Indication: DIABETES MELLITUS NON-INSULIN-DEPENDENT
     Dates: start: 20050701, end: 20060722
  2. LANTUS [Suspect]
     Dates: start: 20060721
  3. LANTUS [Suspect]
  4. AMARYL [Concomitant]
  5. UNKNOWN DRUG [Concomitant]

REACTIONS (7)
  - BLINDNESS UNILATERAL [None]
  - BLOOD GLUCOSE DECREASED [None]
  - BLOOD GLUCOSE FLUCTUATION [None]
  - CATARACT OPERATION [None]
  - DISORIENTATION [None]
  - HYPERHIDROSIS [None]
  - PALLOR [None]
